FAERS Safety Report 13021905 (Version 1)
Quarter: 2016Q4

REPORT INFORMATION
  Report Type: Spontaneous
  Country: FR (occurrence: FR)
  Receive Date: 20161213
  Receipt Date: 20161213
  Transmission Date: 20170207
  Serious: Yes (Death, Hospitalization, Other)
  Sender: FDA-Public Use
  Company Number: FR-ALKEM LABORATORIES LIMITED-FR-ALKEM-2016-00348

PATIENT
  Age: 34 Year
  Sex: Male

DRUGS (6)
  1. LOXAPINE. [Suspect]
     Active Substance: LOXAPINE
     Indication: BIPOLAR DISORDER
     Dosage: UNKNOWN
     Route: 048
     Dates: start: 20120614
  2. LOXAPINE. [Suspect]
     Active Substance: LOXAPINE
     Dosage: 100 MG, UNK
     Route: 030
     Dates: start: 20120625
  3. DIAZEPAM. [Suspect]
     Active Substance: DIAZEPAM
     Indication: BIPOLAR DISORDER
     Dosage: UNKNOWN
  4. VALPROIC ACID. [Suspect]
     Active Substance: VALPROIC ACID
     Indication: BIPOLAR DISORDER
     Dosage: UNKNOWN
  5. QUETIAPINE FUMARATE. [Suspect]
     Active Substance: QUETIAPINE FUMARATE
     Indication: BIPOLAR DISORDER
     Dosage: 600 MG, QD
     Dates: start: 20120605
  6. TROPATEPINE [Suspect]
     Active Substance: TROPATEPINE
     Indication: BIPOLAR DISORDER
     Dosage: UNKNOWN
     Dates: start: 20120605

REACTIONS (9)
  - Intestinal ischaemia [Fatal]
  - Metabolic acidosis [Fatal]
  - Haemorrhage [Fatal]
  - Necrotising colitis [Fatal]
  - Subileus [Fatal]
  - Sepsis [Fatal]
  - Large intestine perforation [Fatal]
  - Multiple organ dysfunction syndrome [Fatal]
  - Cardiac arrest [Fatal]

NARRATIVE: CASE EVENT DATE: 20120625
